FAERS Safety Report 20146797 (Version 2)
Quarter: 2021Q4

REPORT INFORMATION
  Report Type: Spontaneous
  Country: US (occurrence: US)
  Receive Date: 20211203
  Receipt Date: 20211210
  Transmission Date: 20220303
  Serious: No
  Sender: FDA-Public Use
  Company Number: US-PFIZER INC-202101527737

PATIENT
  Age: 55 Year
  Sex: Female
  Weight: 61.23 kg

DRUGS (4)
  1. ESTRING [Suspect]
     Active Substance: ESTRADIOL
     Indication: Menopause
     Dosage: 2MG RING INSERTED EVERY THREE MONTHS
     Dates: start: 2021
  2. ESTRING [Suspect]
     Active Substance: ESTRADIOL
     Indication: Atrophy
  3. ESTRING [Suspect]
     Active Substance: ESTRADIOL
     Indication: Libido disorder
  4. ESTRADIOL [Concomitant]
     Active Substance: ESTRADIOL
     Indication: Vulvovaginal dryness
     Dosage: 1%, LITTLE BIT OF CREAM APPLIED WITH TIP OF FINGER
     Dates: end: 2021

REACTIONS (5)
  - Fatigue [Unknown]
  - Loss of libido [Unknown]
  - Blood oestrogen decreased [Unknown]
  - Loss of personal independence in daily activities [Unknown]
  - Therapeutic product effect incomplete [Unknown]

NARRATIVE: CASE EVENT DATE: 20210101
